FAERS Safety Report 24621375 (Version 2)
Quarter: 2024Q4

REPORT INFORMATION
  Report Type: Spontaneous
  Country: US (occurrence: US)
  Receive Date: 20241114
  Receipt Date: 20241220
  Transmission Date: 20250115
  Serious: No
  Sender: INCYTE
  Company Number: US-INCYTE CORPORATION-2024IN011758

PATIENT

DRUGS (2)
  1. JAKAFI [Suspect]
     Active Substance: RUXOLITINIB
     Indication: Chronic myeloid leukaemia
     Dosage: 10 MILLIGRAM, BID
     Route: 048
     Dates: start: 20241018
  2. JAKAFI [Suspect]
     Active Substance: RUXOLITINIB
     Dosage: 10 MILLIGRAM, BID
     Route: 048
     Dates: start: 20241018

REACTIONS (12)
  - Nasal injury [Unknown]
  - Anxiety [Unknown]
  - Gout [Unknown]
  - Vision blurred [Unknown]
  - White blood cell count increased [Unknown]
  - Cough [Unknown]
  - Rhinorrhoea [Unknown]
  - Nasopharyngitis [Unknown]
  - Epistaxis [Recovered/Resolved]
  - Red blood cell count decreased [Unknown]
  - Platelet count abnormal [Unknown]
  - Off label use [Unknown]

NARRATIVE: CASE EVENT DATE: 20241018
